FAERS Safety Report 5107597-7 (Version None)
Quarter: 2006Q3

REPORT INFORMATION
  Report Type: 
  Country: None (occurrence: None)
  Receive Date: 20060913
  Receipt Date: 20060913
  Transmission Date: 20061208
  Serious: Yes (Hospitalization)
  Sender: FDA-Public Use
  Company Number: None

PATIENT
  Age: 54 Year
  Sex: Male

DRUGS (2)
  1. LINEZOLID [Suspect]
     Indication: ENTEROCOCCAL INFECTION
     Dosage: 600 MG PO BID
     Route: 048
     Dates: start: 20060820, end: 20060901
  2. LINEZOLID [Suspect]
     Indication: PERITONEAL INFECTION
     Dosage: 600 MG PO BID
     Route: 048
     Dates: start: 20060820, end: 20060901

REACTIONS (14)
  - AGGRESSION [None]
  - AGITATION [None]
  - ANXIETY [None]
  - CONFUSIONAL STATE [None]
  - COORDINATION ABNORMAL [None]
  - DRUG INTERACTION [None]
  - DRUG TOXICITY [None]
  - HYPERTENSION [None]
  - INSOMNIA [None]
  - MENTAL STATUS CHANGES [None]
  - NEUROTOXICITY [None]
  - PERITONEAL INFECTION [None]
  - SEROTONIN SYNDROME [None]
  - TREMOR [None]
